APPROVED DRUG PRODUCT: DIANEAL 137 W/ DEXTROSE 1.5% IN PLASTIC CONTAINER
Active Ingredient: CALCIUM CHLORIDE; DEXTROSE; MAGNESIUM CHLORIDE; SODIUM CHLORIDE; SODIUM LACTATE
Strength: 25.7MG/100ML;1.5GM/100ML;15.2MG/100ML;567MG/100ML;392MG/100ML
Dosage Form/Route: SOLUTION;INTRAPERITONEAL
Application: N017512 | Product #001
Applicant: VANTIVE US HEALTHCARE LLC
Approved: Approved Prior to Jan 1, 1982 | RLD: No | RS: No | Type: DISCN